FAERS Safety Report 16776502 (Version 1)
Quarter: 2019Q3

REPORT INFORMATION
  Report Type: Spontaneous
  Country: DE (occurrence: DE)
  Receive Date: 20190905
  Receipt Date: 20190905
  Transmission Date: 20191005
  Serious: Yes (Hospitalization)
  Sender: FDA-Public Use
  Company Number: DE-JNJFOC-20190837221

PATIENT
  Age: 38 Year
  Sex: Male

DRUGS (13)
  1. FLUVOXAMIN [Concomitant]
     Active Substance: FLUVOXAMINE MALEATE
     Route: 065
  2. HALDOL DECANOATE [Suspect]
     Active Substance: HALOPERIDOL DECANOATE
     Indication: PRODUCT USED FOR UNKNOWN INDICATION
     Dates: start: 2017
  3. HALDOL [Suspect]
     Active Substance: HALOPERIDOL
     Indication: PRODUCT USED FOR UNKNOWN INDICATION
     Route: 065
     Dates: start: 2017
  4. CLOZAPIN RATIOPHARM [Interacting]
     Active Substance: CLOZAPINE
     Indication: SCHIZOPHRENIA
     Route: 065
  5. ORFIRIL [Concomitant]
     Active Substance: VALPROATE SODIUM
     Indication: EPILEPSY
     Dosage: DOSING: 900 MG-0 MG-900 MG
     Route: 065
  6. LEPONEX [Suspect]
     Active Substance: CLOZAPINE
     Indication: SCHIZOPHRENIA
     Dosage: 50 MG-0 MG-450 MG
     Route: 065
     Dates: start: 201806
  7. LEPONEX [Suspect]
     Active Substance: CLOZAPINE
     Route: 065
  8. FLUVOXAMIN [Concomitant]
     Active Substance: FLUVOXAMINE MALEATE
     Route: 065
  9. ORFIRIL [Concomitant]
     Active Substance: VALPROATE SODIUM
     Route: 065
  10. LEPONEX [Suspect]
     Active Substance: CLOZAPINE
     Route: 065
  11. ORFIRIL [Concomitant]
     Active Substance: VALPROATE SODIUM
     Route: 065
  12. FLUVOXAMIN [Concomitant]
     Active Substance: FLUVOXAMINE MALEATE
     Indication: PRODUCT USED FOR UNKNOWN INDICATION
     Dosage: DOSING: 50 MG-0 MG-50 MG
     Route: 065
  13. NEBIVOLOL. [Concomitant]
     Active Substance: NEBIVOLOL
     Indication: PRODUCT USED FOR UNKNOWN INDICATION
     Route: 065

REACTIONS (6)
  - Rathke^s cleft cyst [Unknown]
  - Emotional poverty [Unknown]
  - Urinary incontinence [Unknown]
  - Deformity [Unknown]
  - Muscle rigidity [Unknown]
  - Drug interaction [Unknown]

NARRATIVE: CASE EVENT DATE: 2017
